FAERS Safety Report 10700202 (Version 1)
Quarter: 2015Q1

REPORT INFORMATION
  Report Type: Spontaneous
  Country: CN (occurrence: None)
  Receive Date: 20150107
  Receipt Date: 20150107
  Transmission Date: 20150721
  Serious: Yes (Death, Hospitalization)
  Sender: FDA-Public Use
  Company Number: 2014PL000209

PATIENT
  Age: 81 Year
  Sex: Female

DRUGS (2)
  1. PROLEUKIN [Suspect]
     Active Substance: ALDESLEUKIN
     Indication: RENAL CELL CARCINOMA
     Dosage: SEE NARRATIVE
     Route: 058
  2. INTERFERON ALFA NOS [Suspect]
     Active Substance: INTERFERON ALFA-2A OR INTERFERON ALFA-2B
     Indication: RENAL CELL CARCINOMA
     Dosage: SEE NARRATIVE
     Route: 058

REACTIONS (7)
  - Condition aggravated [None]
  - Restrictive pulmonary disease [None]
  - Refusal of treatment by patient [None]
  - Cyanosis [None]
  - Total lung capacity abnormal [None]
  - Respiratory failure [None]
  - Interstitial lung disease [None]

NARRATIVE: CASE EVENT DATE: 2012
